FAERS Safety Report 10060935 (Version 1)
Quarter: 2014Q2

REPORT INFORMATION
  Report Type: Spontaneous
  Country: FR (occurrence: FR)
  Receive Date: 20140404
  Receipt Date: 20140404
  Transmission Date: 20141212
  Serious: Yes (Hospitalization)
  Sender: FDA-Public Use
  Company Number: FR-ASTRAZENECA-2014SE22248

PATIENT
  Age: 22438 Day
  Sex: Male

DRUGS (10)
  1. INEXIUM [Suspect]
     Route: 048
  2. XARELTO [Suspect]
     Route: 048
     Dates: start: 20140207, end: 20140306
  3. KARDEGIC [Suspect]
     Route: 048
     Dates: start: 20110101
  4. TEMERIT [Suspect]
     Dosage: 5 MG HALF DOSAGE FORM DAILY
     Route: 048
     Dates: start: 20110101
  5. TAHOR [Suspect]
     Route: 048
     Dates: start: 20110101
  6. SPIRONOLACTONE [Concomitant]
  7. AZARGA [Concomitant]
     Dosage: 1 DROP MORNING AND NIGHT
     Route: 031
  8. ACUPAN [Concomitant]
     Dosage: 3 VIALS DAILY
  9. STILNOX [Concomitant]
  10. DOLIPRANE [Concomitant]

REACTIONS (1)
  - Haemarthrosis [Not Recovered/Not Resolved]
